FAERS Safety Report 5632192-0 (Version None)
Quarter: 2008Q1

REPORT INFORMATION
  Report Type: 
  Country: None (occurrence: None)
  Receive Date: 20080213
  Receipt Date: 20080205
  Transmission Date: 20080703
  Serious: Yes (Hospitalization, Other)
  Sender: FDA-Public Use
  Company Number: 100#08#2008-00700

PATIENT
  Age: 63 Year
  Sex: Male

DRUGS (2)
  1. METHYLPREDNISOLONE [Suspect]
     Indication: INFLAMMATION
     Dosage: 1 G; INTRAVENOUS (NOT OTHERWISE SPECIFIED)
     Route: 042
  2. METHYLPREDNISOLONE [Suspect]
     Indication: SPINAL CORD DISORDER
     Dosage: 1 G; INTRAVENOUS (NOT OTHERWISE SPECIFIED)
     Route: 042

REACTIONS (6)
  - ANGIOGRAM CEREBRAL ABNORMAL [None]
  - CEREBRAL DISORDER [None]
  - CONDITION AGGRAVATED [None]
  - MOTOR DYSFUNCTION [None]
  - MYELOPATHY [None]
  - SENSORY DISTURBANCE [None]
